FAERS Safety Report 4302737-1 (Version None)
Quarter: 2004Q1

REPORT INFORMATION
  Report Type: 
  Country: None (occurrence: None)
  Receive Date: 20040224
  Receipt Date: 20040113
  Transmission Date: 20041129
  Serious: Yes (Hospitalization, Other)
  Sender: FDA-Public Use
  Company Number: PHRM2004FR00528

PATIENT
  Age: 65 Year
  Sex: Male
  Weight: 64 kg

DRUGS (2)
  1. VOLTAREN [Suspect]
     Indication: BACK PAIN
     Dosage: UNK, UNK
     Route: 048
     Dates: start: 19850101, end: 19980101
  2. NSAID'S [Suspect]
     Dates: start: 19980101

REACTIONS (2)
  - OESOPHAGEAL ADENOCARCINOMA [None]
  - OESOPHAGITIS [None]
